FAERS Safety Report 21474257 (Version 2)
Quarter: 2023Q1

REPORT INFORMATION
  Report Type: Report from Study
  Country: US (occurrence: US)
  Receive Date: 20221018
  Receipt Date: 20230201
  Transmission Date: 20230418
  Serious: No
  Sender: FDA-Public Use
  Company Number: US-ABBVIE-4139252

PATIENT
  Age: 79 Year
  Sex: Female

DRUGS (2)
  1. IMBRUVICA [Suspect]
     Active Substance: IBRUTINIB
     Indication: Waldenstrom^s macroglobulinaemia
     Route: 048
     Dates: start: 202006
  2. IMBRUVICA [Suspect]
     Active Substance: IBRUTINIB
     Indication: Waldenstrom^s macroglobulinaemia
     Route: 048

REACTIONS (18)
  - Arthropathy [Unknown]
  - Nerve compression [Unknown]
  - Arthralgia [Unknown]
  - Emotional disorder [Unknown]
  - Tooth fracture [Unknown]
  - Mobility decreased [Unknown]
  - Decreased activity [Unknown]
  - Gait disturbance [Unknown]
  - Balance disorder [Recovering/Resolving]
  - Electrocardiogram abnormal [Unknown]
  - Gingival bleeding [Unknown]
  - Nervous system disorder [Unknown]
  - Gingival pain [Unknown]
  - Poor quality sleep [Unknown]
  - Depression [Unknown]
  - Cerebral disorder [Unknown]
  - Blood pressure abnormal [Unknown]
  - Hypersomnia [Unknown]

NARRATIVE: CASE EVENT DATE: 20230118
